FAERS Safety Report 5963853-1 (Version None)
Quarter: 2008Q4

REPORT INFORMATION
  Report Type: 
  Country: None (occurrence: None)
  Receive Date: 20081124
  Receipt Date: 20081112
  Transmission Date: 20090506
  Serious: Yes (Other)
  Sender: FDA-Public Use
  Company Number: DE-SANOFI-SYNTHELABO-A04200801319

PATIENT
  Age: 50 Year
  Sex: Male

DRUGS (1)
  1. ELOXATIN [Suspect]
     Indication: DRUG USE FOR UNKNOWN INDICATION
     Route: 041
     Dates: start: 20080101, end: 20080101

REACTIONS (2)
  - ACQUIRED DIAPHRAGMATIC EVENTRATION [None]
  - DIAPHRAGMATIC PARALYSIS [None]
